FAERS Safety Report 15134798 (Version 1)
Quarter: 2018Q3

REPORT INFORMATION
  Report Type: Spontaneous
  Country: GR (occurrence: GR)
  Receive Date: 20180712
  Receipt Date: 20180712
  Transmission Date: 20181010
  Serious: Yes (Other)
  Sender: FDA-Public Use
  Company Number: GR-PFIZER INC-2018275441

PATIENT
  Age: 38 Year
  Sex: Female

DRUGS (5)
  1. CASTOR OIL. [Suspect]
     Active Substance: CASTOR OIL
     Dosage: UNK
  2. FASLODEX [Suspect]
     Active Substance: FULVESTRANT
     Indication: BREAST CANCER METASTATIC
     Dosage: 250 MG, UNK
     Route: 030
     Dates: start: 20170523
  3. IBRANCE [Suspect]
     Active Substance: PALBOCICLIB
     Indication: BREAST CANCER METASTATIC
     Dosage: UNK
     Route: 048
  4. FASLODEX [Suspect]
     Active Substance: FULVESTRANT
     Dosage: 500 MG, MONTHLY
     Route: 030
  5. BENZYL BENZOATE [Suspect]
     Active Substance: BENZYL BENZOATE
     Dosage: UNK

REACTIONS (4)
  - Allergic reaction to excipient [Recovered/Resolved]
  - Cough [Recovered/Resolved]
  - Dysphonia [Recovered/Resolved]
  - Rash generalised [Recovered/Resolved]
